FAERS Safety Report 14621556 (Version 3)
Quarter: 2022Q4

REPORT INFORMATION
  Report Type: Spontaneous
  Country: IT (occurrence: IT)
  Receive Date: 20180310
  Receipt Date: 20221122
  Transmission Date: 20230112
  Serious: Yes (Other)
  Sender: FDA-Public Use
  Company Number: IT-AUROBINDO-AUR-APL-2018-012747

PATIENT
  Age: 46 Year
  Sex: Female

DRUGS (2)
  1. LORAZEPAM [Suspect]
     Active Substance: LORAZEPAM
     Indication: Product used for unknown indication
     Dosage: 20 MILLIGRAM (20 MG, TOTAL ; IN TOTAL)
     Route: 048
     Dates: start: 20161222, end: 20161222
  2. ALPRAZOLAM [Suspect]
     Active Substance: ALPRAZOLAM
     Indication: Product used for unknown indication
     Dosage: 8.5 MILLIGRAM ( TOTAL ; IN TOTAL)
     Route: 048
     Dates: start: 20161222, end: 20161222

REACTIONS (4)
  - Intentional self-injury [Unknown]
  - Drug abuse [Unknown]
  - Tremor [Unknown]
  - Intentional overdose [Unknown]

NARRATIVE: CASE EVENT DATE: 20161222
